FAERS Safety Report 8376310-2 (Version None)
Quarter: 2012Q2

REPORT INFORMATION
  Report Type: 
  Country: None (occurrence: None)
  Receive Date: 20120522
  Receipt Date: 20120510
  Transmission Date: 20120825
  Serious: Yes (Hospitalization, Other)
  Sender: FDA-Public Use
  Company Number: ZA-JNJFOC-20120511817

PATIENT
  Sex: Male
  Weight: 38 kg

DRUGS (9)
  1. URSOTAN [Concomitant]
     Indication: CHOLANGITIS SCLEROSING
     Route: 065
     Dates: start: 20101004
  2. REVELLEX [Suspect]
     Route: 042
     Dates: start: 20120514
  3. REVELLEX [Suspect]
     Indication: COLITIS ULCERATIVE
     Route: 042
     Dates: start: 20120426
  4. PHENERGAN [Concomitant]
     Indication: PREMEDICATION
     Route: 065
  5. AZAPRESS [Concomitant]
     Indication: COLITIS ULCERATIVE
     Route: 065
     Dates: start: 20120114
  6. ASACOL [Concomitant]
     Indication: CROHN'S DISEASE
     Route: 065
  7. ARAVA [Concomitant]
     Indication: ARTHRITIS
     Route: 065
     Dates: start: 20110202, end: 20120219
  8. TEXA [Concomitant]
     Dosage: FOR 7DAYS
     Route: 065
  9. PREDNISONE [Concomitant]
     Indication: COLITIS ULCERATIVE
     Route: 065
     Dates: start: 20100902

REACTIONS (1)
  - URTICARIA [None]
